FAERS Safety Report 6187206-9 (Version None)
Quarter: 2009Q2

REPORT INFORMATION
  Report Type: 
  Country: None (occurrence: None)
  Receive Date: 20090512
  Receipt Date: 20090430
  Transmission Date: 20091009
  Serious: Yes (Other)
  Sender: FDA-Public Use
  Company Number: PHEH2009US04527

PATIENT
  Sex: Female

DRUGS (14)
  1. RECLAST [Suspect]
     Dosage: UNK
     Dates: start: 20090201
  2. AVAPRO [Concomitant]
     Dosage: 300 MG, UNK
  3. LASIX [Concomitant]
     Dosage: 20 MG, UNK
  4. LIPITOR [Concomitant]
     Dosage: 10 MG, UNK
  5. PREVACID [Concomitant]
     Dosage: 30 MG, UNK
  6. SYNTHROID [Concomitant]
     Dosage: 0.75 MG, UNK
  7. TOPROL-XL [Concomitant]
     Dosage: 150 MG, UNK
  8. CALCIUM CITRATE [Concomitant]
  9. VITAMIN D3 [Concomitant]
  10. LOVAZA [Concomitant]
  11. BIOGLAN ONE A DAY WOMEN'S COMPLETE MULTICOMP [Concomitant]
  12. ASPIRIN [Concomitant]
     Dosage: 81 MG, UNK
  13. LACTAID [Concomitant]
  14. VAGIFEM [Concomitant]

REACTIONS (4)
  - ARTHRALGIA [None]
  - FIBROMYALGIA [None]
  - MUSCULOSKELETAL PAIN [None]
  - OEDEMA PERIPHERAL [None]
